FAERS Safety Report 14467971 (Version 3)
Quarter: 2018Q3

REPORT INFORMATION
  Report Type: Spontaneous
  Country: US (occurrence: US)
  Receive Date: 20180131
  Receipt Date: 20180720
  Transmission Date: 20181010
  Serious: Yes (Hospitalization)
  Sender: FDA-Public Use
  Company Number: US-PFIZER INC-2018039656

PATIENT
  Age: 72 Year
  Sex: Female
  Weight: 88.45 kg

DRUGS (2)
  1. EFFEXOR XR [Suspect]
     Active Substance: VENLAFAXINE HYDROCHLORIDE
     Dosage: UNK, 2X/DAY [150 IN MORNING 75 AT NOON]
     Dates: start: 20180219
  2. EFFEXOR XR [Suspect]
     Active Substance: VENLAFAXINE HYDROCHLORIDE
     Indication: DEPRESSION
     Dosage: 75 MG, 3X/DAY
     Route: 048

REACTIONS (1)
  - Hypoacusis [Unknown]
